FAERS Safety Report 26140962 (Version 2)
Quarter: 2025Q4

REPORT INFORMATION
  Report Type: Report from Study
  Country: US (occurrence: US)
  Receive Date: 20251210
  Receipt Date: 20251218
  Transmission Date: 20260117
  Serious: Yes (Other)
  Sender: BAYER HEALTHCARE PHARMACEUTICALS INC.
  Company Number: US-BAYER-2025A161278

PATIENT
  Age: 87 Year
  Sex: Male

DRUGS (14)
  1. NUBEQA [Suspect]
     Active Substance: DAROLUTAMIDE
     Indication: Metastases to bone
     Dosage: 600 MG, BID
     Route: 048
     Dates: start: 20251120, end: 2025
  2. NUBEQA [Suspect]
     Active Substance: DAROLUTAMIDE
     Indication: Prostate cancer
     Dosage: 600 MG, BID
     Route: 048
     Dates: start: 2025
  3. TUMS CHEWIES [Concomitant]
     Dosage: 500MG
  4. VITAMIN E [Concomitant]
     Active Substance: .ALPHA.-TOCOPHEROL
     Dosage: 1000UNIT
  5. FIRMAGON [Concomitant]
     Active Substance: DEGARELIX ACETATE
     Dosage: 80MG
  6. FISH OIL [Concomitant]
     Active Substance: FISH OIL
     Dosage: 1200MG
  7. GLUCOSAMINE [Concomitant]
     Active Substance: GLUCOSAMINE
  8. IRON [Concomitant]
     Active Substance: IRON
     Dosage: 28MG
  9. MINERALS\VITAMINS [Concomitant]
     Active Substance: MINERALS\VITAMINS
     Dosage: UNK
  10. VITAMIN B12 [Concomitant]
     Active Substance: CYANOCOBALAMIN
     Dosage: 1000MCG
  11. VITAMIN C [Concomitant]
     Active Substance: ASCORBIC ACID
     Dosage: 1000MG
  12. VITAMIN D [Concomitant]
     Active Substance: VITAMIN D NOS
     Dosage: 25 MCG(1000
  13. FAMOTIDINE [Concomitant]
     Active Substance: FAMOTIDINE
     Dosage: UNK
  14. BUMETANIDE [Concomitant]
     Active Substance: BUMETANIDE
     Dosage: 1MG

REACTIONS (11)
  - Renal disorder [Not Recovered/Not Resolved]
  - Gastrointestinal disorder [Not Recovered/Not Resolved]
  - Chest pain [Not Recovered/Not Resolved]
  - Fatigue [Not Recovered/Not Resolved]
  - Vision blurred [Not Recovered/Not Resolved]
  - Blood pressure increased [Recovering/Resolving]
  - Decreased appetite [Not Recovered/Not Resolved]
  - Weight fluctuation [Not Recovered/Not Resolved]
  - Diarrhoea [Not Recovered/Not Resolved]
  - Pruritus [Recovered/Resolved]
  - Nasal congestion [Not Recovered/Not Resolved]

NARRATIVE: CASE EVENT DATE: 20250101
